FAERS Safety Report 10509326 (Version 4)
Quarter: 2015Q3

REPORT INFORMATION
  Report Type: Spontaneous
  Country: US (occurrence: US)
  Receive Date: 20141009
  Receipt Date: 20150828
  Transmission Date: 20151125
  Serious: Yes (Other)
  Sender: FDA-Public Use
  Company Number: US-BAXTER-2014BAX058243

PATIENT
  Age: 54 Year
  Sex: Female

DRUGS (8)
  1. RINGERS [Suspect]
     Active Substance: CALCIUM CHLORIDE\POTASSIUM CHLORIDE\SODIUM CHLORIDE
     Indication: MULTIPLE SCLEROSIS
     Route: 042
     Dates: start: 199805, end: 201403
  2. CALCIUM EAP [Suspect]
     Active Substance: CALCIUM
     Route: 048
     Dates: start: 1998, end: 201403
  3. TROPHICARD [Suspect]
     Active Substance: MAGNESIUM ASPARTATE\POTASSIUM ASPARTATE
     Indication: MULTIPLE SCLEROSIS
     Route: 042
     Dates: start: 199805, end: 201403
  4. 0.9% SODIUM CHLORIDE INJECTION [Suspect]
     Active Substance: SODIUM CHLORIDE
     Indication: OFF LABEL USE
  5. CALCIUM EAP [Suspect]
     Active Substance: CALCIUM
     Indication: MULTIPLE SCLEROSIS
     Route: 042
     Dates: start: 199805, end: 201403
  6. MANDELONITRIL [Suspect]
     Active Substance: PRULAURASIN
     Indication: MULTIPLE SCLEROSIS
     Route: 042
     Dates: start: 1998, end: 201403
  7. 0.9% SODIUM CHLORIDE INJECTION [Suspect]
     Active Substance: SODIUM CHLORIDE
     Indication: MULTIPLE SCLEROSIS
     Route: 042
     Dates: start: 199805, end: 201403
  8. RINGERS [Suspect]
     Active Substance: CALCIUM CHLORIDE\POTASSIUM CHLORIDE\SODIUM CHLORIDE
     Indication: OFF LABEL USE

REACTIONS (21)
  - Product container issue [Recovering/Resolving]
  - Lung disorder [Unknown]
  - Multiple sclerosis [Unknown]
  - Joint injury [Unknown]
  - Malaise [Unknown]
  - Exfoliative rash [Unknown]
  - Toxicity to various agents [Unknown]
  - Neuropathy peripheral [Unknown]
  - Nightmare [Unknown]
  - Fall [Unknown]
  - Contusion [Unknown]
  - Fatigue [Unknown]
  - Headache [Unknown]
  - Bone pain [Unknown]
  - Device toxicity [Recovering/Resolving]
  - Malabsorption [Unknown]
  - Chest injury [Unknown]
  - Arthritis [Unknown]
  - Nausea [Unknown]
  - Skin discolouration [Recovering/Resolving]
  - Rash erythematous [Unknown]

NARRATIVE: CASE EVENT DATE: 201410
